FAERS Safety Report 26069023 (Version 1)
Quarter: 2025Q4

REPORT INFORMATION
  Report Type: Spontaneous
  Country: CN (occurrence: CN)
  Receive Date: 20251120
  Receipt Date: 20251120
  Transmission Date: 20260117
  Serious: Yes (Other)
  Sender: BAXTER
  Company Number: None

PATIENT
  Age: 55 Year
  Sex: Female
  Weight: 79 kg

DRUGS (13)
  1. CYCLOPHOSPHAMIDE [Suspect]
     Active Substance: CYCLOPHOSPHAMIDE
     Indication: Breast cancer female
     Dosage: 1 G, ST
     Route: 041
     Dates: start: 20251009
  2. CYCLOPHOSPHAMIDE [Suspect]
     Active Substance: CYCLOPHOSPHAMIDE
     Dosage: 1 G, QD
     Route: 041
     Dates: start: 20251106, end: 20251106
  3. DEXTROSE [Suspect]
     Active Substance: DEXTROSE MONOHYDRATE
     Dosage: 250 ML, QD (5% INJECTION WITH MAGNESIUM ISOGLYCYRRHIZINATE)
     Route: 041
     Dates: start: 202511
  4. SODIUM CHLORIDE [Suspect]
     Active Substance: SODIUM CHLORIDE
     Dosage: 250 ML, QD, FOR 2 DAYS (0.9% INJECTION WITH GLUTATHIONE)
     Route: 041
     Dates: start: 202511
  5. PACLITAXEL [Suspect]
     Active Substance: PACLITAXEL
     Indication: Breast cancer female
     Dosage: 400 MG, ST
     Route: 041
     Dates: start: 20251009
  6. PACLITAXEL [Suspect]
     Active Substance: PACLITAXEL
     Dosage: 400 MG, QD
     Route: 041
     Dates: start: 20251106, end: 20251106
  7. SODIUM CHLORIDE [Suspect]
     Active Substance: SODIUM CHLORIDE
     Indication: Medication dilution
     Dosage: 80 ML, ST (WITH PACLITAXEL)
     Route: 041
     Dates: start: 20251009
  8. SODIUM CHLORIDE [Suspect]
     Active Substance: SODIUM CHLORIDE
     Dosage: 100 ML, ST (WITH CYCLOPHOSPHAMIDE)
     Route: 041
     Dates: start: 20251009
  9. SODIUM CHLORIDE [Suspect]
     Active Substance: SODIUM CHLORIDE
     Dosage: 80 ML, QD (WITH PACLITAXEL)
     Route: 041
     Dates: start: 20251106, end: 20251106
  10. SODIUM CHLORIDE [Suspect]
     Active Substance: SODIUM CHLORIDE
     Dosage: 100 ML, QD (WITH CYCLOPHOSPHAMIDE)
     Route: 041
     Dates: start: 20251106, end: 20251106
  11. LECITHIN [Concomitant]
     Active Substance: LECITHIN
     Dosage: 2 DOSAGE FORM, TID
     Route: 048
     Dates: start: 202511
  12. MAGNESIUM ISOGLYCYRRHIZINATE [Concomitant]
     Active Substance: MAGNESIUM ISOGLYCYRRHIZINATE
     Dosage: 200 MG, QD
     Route: 041
     Dates: start: 202511
  13. GLUTATHIONE [Concomitant]
     Active Substance: GLUTATHIONE
     Dosage: 1.2 G, QD
     Route: 041
     Dates: start: 202511

REACTIONS (1)
  - Drug-induced liver injury [Unknown]

NARRATIVE: CASE EVENT DATE: 20251113
